FAERS Safety Report 5401405-2 (Version None)
Quarter: 2007Q3

REPORT INFORMATION
  Report Type: 
  Country: None (occurrence: None)
  Receive Date: 20070731
  Receipt Date: 20070727
  Transmission Date: 20080115
  Serious: Yes (Death)
  Sender: FDA-Public Use
  Company Number: DE-JNJFOC-20070706589

PATIENT

DRUGS (1)
  1. ITRACONAZOLE [Suspect]
     Indication: PROPHYLAXIS
     Route: 048

REACTIONS (1)
  - ASPERGILLOSIS [None]
